FAERS Safety Report 5940143-4 (Version None)
Quarter: 2008Q4

REPORT INFORMATION
  Report Type: 
  Country: None (occurrence: None)
  Receive Date: 20081104
  Receipt Date: 20081030
  Transmission Date: 20090506
  Serious: Yes (Death, Other)
  Sender: FDA-Public Use
  Company Number: PHHY2008BR15008

PATIENT
  Sex: Male
  Weight: 26 kg

DRUGS (59)
  1. SANDIMMUNE [Suspect]
     Indication: PROPHYLAXIS AGAINST GRAFT VERSUS HOST DISEASE
     Dosage: 80 MG, UNK
     Dates: start: 20080418, end: 20080419
  2. SANDIMMUNE [Suspect]
     Dosage: 50 MG, Q12H
     Dates: end: 20080419
  3. MEROPENEM [Concomitant]
  4. ACYCLOVIR [Concomitant]
  5. ONDANSETRON HCL [Concomitant]
  6. METYLPREDNISOLON SOLUBILE [Concomitant]
  7. CASPOFUNGIN [Concomitant]
  8. GRANULOKINE [Concomitant]
  9. OMEPRAZOLE [Concomitant]
  10. AMLODIPINE [Concomitant]
  11. ZOVIRAX [Concomitant]
  12. URSACOL [Concomitant]
  13. ZOLBEN [Concomitant]
  14. ALCALONE (ALUMINIUM/MAGNESIUM) [Concomitant]
  15. AMIKACIN [Concomitant]
  16. ANTI-THYMOCYTE GLOBULIN NOS [Concomitant]
  17. DIGESAN [Concomitant]
  18. CANCIDAS [Concomitant]
  19. CAPOTEN [Concomitant]
  20. MAXCEF [Concomitant]
  21. CYCLOPHOSPHAMIDE [Concomitant]
  22. CIPRO [Concomitant]
  23. CISATRACURIUM [Concomitant]
  24. CLARITHROMYCIN [Concomitant]
  25. TRAMADOL HCL [Concomitant]
  26. DEXAMETHASONE 0.5MG TAB [Concomitant]
  27. VALIUM [Concomitant]
  28. LUFTAL [Concomitant]
  29. DIPYRONE TAB [Concomitant]
  30. FENTANYL [Concomitant]
  31. ZOLTEC [Concomitant]
  32. LEUCOVORIN CALCIUM [Concomitant]
  33. LASIX [Concomitant]
  34. GANCICLOVIR [Concomitant]
  35. SOLU-CORTEF [Concomitant]
  36. IMMUNE GLOBULIN NOS [Concomitant]
  37. INSULIN [Concomitant]
  38. ZYVOX [Concomitant]
  39. MANNITOL [Concomitant]
  40. MERONEM [Concomitant]
  41. SOLU-MEDROL [Concomitant]
  42. PLASIL [Concomitant]
  43. FLAGYL [Concomitant]
  44. DORMONID [Concomitant]
  45. MORPHINE [Concomitant]
  46. METHOTREXATE [Concomitant]
  47. NORADRENALINE [Concomitant]
  48. ZOFRAN [Concomitant]
  49. TYLENOL [Concomitant]
  50. FENERGAN [Concomitant]
  51. BACTRIM [Concomitant]
  52. PROGRAF [Concomitant]
  53. VANCOMYCIN HYDROCHLORIDE [Concomitant]
  54. VFEND [Concomitant]
  55. ABELCET [Concomitant]
  56. ADRENALINE [Concomitant]
  57. DOBUTAMINE HCL [Concomitant]
  58. AMPHOTERICIN B [Concomitant]
  59. PIPERACILLIN SODIUM AND TAZOBACTAM SODIUM [Concomitant]

REACTIONS (13)
  - ABDOMINAL PAIN [None]
  - CYTOMEGALOVIRUS INFECTION [None]
  - FATIGUE [None]
  - GRAFT VERSUS HOST DISEASE [None]
  - HYPOTENSION [None]
  - MECHANICAL VENTILATION [None]
  - RESPIRATORY FAILURE [None]
  - SEPSIS [None]
  - SOMNOLENCE [None]
  - TACHYCARDIA [None]
  - VASCULITIS [None]
  - VISION BLURRED [None]
  - VISUAL ACUITY REDUCED [None]
